FAERS Safety Report 5128683-1 (Version None)
Quarter: 2006Q4

REPORT INFORMATION
  Report Type: 
  Country: None (occurrence: None)
  Receive Date: 20061017
  Receipt Date: 20060216
  Transmission Date: 20070319
  Serious: Yes (Other)
  Sender: FDA-Public Use
  Company Number: 2006AP00815

PATIENT
  Age: 64 Year
  Sex: Female
  Weight: 55 kg

DRUGS (6)
  1. ARIMIDEX [Suspect]
     Indication: BREAST CANCER
     Route: 048
     Dates: start: 20051216, end: 20060113
  2. ARIMIDEX [Suspect]
     Route: 048
     Dates: start: 20060126
  3. AMARYL [Concomitant]
     Indication: DIABETES MELLITUS
     Route: 048
  4. NITOROL R [Concomitant]
     Indication: HYPERTENSION
     Route: 048
  5. GASMOTIN [Concomitant]
     Indication: GASTRITIS
     Route: 048
  6. LIVALO [Concomitant]
     Indication: HYPERLIPIDAEMIA
     Route: 048

REACTIONS (2)
  - DEPRESSION [None]
  - HYPERGLYCAEMIA [None]
